FAERS Safety Report 16710996 (Version 1)
Quarter: 2019Q3

REPORT INFORMATION
  Report Type: Spontaneous
  Country: DE (occurrence: DE)
  Receive Date: 20190816
  Receipt Date: 20190816
  Transmission Date: 20191004
  Serious: Yes (Hospitalization)
  Sender: FDA-Public Use
  Company Number: DE-NOVOPROD-677778

PATIENT
  Age: 81 Year
  Sex: Male

DRUGS (12)
  1. SIMVASTATIN. [Concomitant]
     Active Substance: SIMVASTATIN
     Dosage: 20 MG, QD (0-0-0-1)
     Route: 065
  2. MELPERONE [Concomitant]
     Active Substance: MELPERONE
     Dosage: 25 MG, QD (0-0-0-1)
     Route: 065
  3. COLECALCIFEROL [Concomitant]
     Active Substance: CHOLECALCIFEROL
     Dosage: 2 DF, QD (1000 IE, 0-2-0-0)
     Route: 065
  4. HUMAN INSULIN [Suspect]
     Active Substance: INSULIN HUMAN
     Indication: PRODUCT USED FOR UNKNOWN INDICATION
     Dosage: UNK (IE)
     Route: 058
  5. METAMIZOLE [Concomitant]
     Active Substance: METAMIZOLE
     Dosage: 1000 MG , 6 HOURS (2-2-2-2)
     Route: 065
  6. METOPROLOL. [Concomitant]
     Active Substance: METOPROLOL
     Dosage: 23.75 MG, QD (1-0-0-0)
     Route: 065
  7. TORASEMID [Concomitant]
     Active Substance: TORSEMIDE
     Dosage: 5 MG, QD (1-0-0-0)
     Route: 065
  8. INSULIN GLARGINE [Suspect]
     Active Substance: INSULIN GLARGINE
     Indication: PRODUCT USED FOR UNKNOWN INDICATION
     Dosage: UNK (IE)
     Route: 058
  9. LEVODOPA/CARBIDOPA/ENTACAPONE [Concomitant]
     Active Substance: CARBIDOPA\ENTACAPONE\LEVODOPA
     Dosage: 100-25-200 MG, (1 DF, 6 HOURS) (1-1-1-1)
     Route: 065
  10. LEVODOPA/BENSERAZIDE [Concomitant]
     Active Substance: BENSERAZIDE\LEVODOPA
     Dosage: 1 DF, QD (200/50 MG, 0-0-0-1)
     Route: 065
  11. RASAGILIN [Concomitant]
     Active Substance: RASAGILINE MESYLATE
     Dosage: 1 MG, QD (1-0-0-0)
     Route: 065
  12. PAROXETINE. [Concomitant]
     Active Substance: PAROXETINE
     Dosage: 20 MG, QD (0-0-0-1)
     Route: 065

REACTIONS (3)
  - Accidental overdose [Unknown]
  - Seizure [Unknown]
  - Blood glucose decreased [Unknown]

NARRATIVE: CASE EVENT DATE: 20180207
